FAERS Safety Report 8555038-X (Version None)
Quarter: 2012Q3

REPORT INFORMATION
  Report Type: 
  Country: None (occurrence: None)
  Receive Date: 20120731
  Receipt Date: 20120720
  Transmission Date: 20120928
  Serious: Yes (Hospitalization)
  Sender: FDA-Public Use
  Company Number: FR-FRI-1000037436

PATIENT
  Sex: Female

DRUGS (3)
  1. CITALOPRAM HYDROBROMIDE [Suspect]
     Dosage: 20 MG
     Route: 048
     Dates: start: 20120403
  2. LOVENOX [Suspect]
     Indication: THROMBOSIS PROPHYLAXIS
     Dosage: 10000 IU
     Route: 058
     Dates: start: 20120314
  3. VITAMINE B12 [Concomitant]
     Dosage: 0.0333 DF
     Route: 048
     Dates: start: 20100909

REACTIONS (1)
  - HAEMATOMA [None]
